FAERS Safety Report 13347152 (Version 16)
Quarter: 2021Q3

REPORT INFORMATION
  Report Type: Spontaneous
  Country: US (occurrence: US)
  Receive Date: 20170317
  Receipt Date: 20210811
  Transmission Date: 20211014
  Serious: No
  Sender: FDA-Public Use
  Company Number: US-PFIZER INC-2017118454

PATIENT
  Age: 50 Year
  Sex: Female
  Weight: 99 kg

DRUGS (4)
  1. LYRICA [Suspect]
     Active Substance: PREGABALIN
     Indication: FIBROMYALGIA
     Dosage: 300 MG, 2X/DAY (QTY: 180 CAPSULE)
     Route: 048
  2. LYRICA [Suspect]
     Active Substance: PREGABALIN
     Dosage: 600 MG, 1X/DAY
     Route: 048
     Dates: end: 20191222
  3. IBUPROFEN. [Concomitant]
     Active Substance: IBUPROFEN
     Indication: PAIN
     Dosage: 800 MG, 3X/DAY
     Route: 048
  4. KLONOPIN [Concomitant]
     Active Substance: CLONAZEPAM
     Indication: ANXIETY
     Dosage: 1 MG, UNK (TAKE 1?2 TIMES A DAY)

REACTIONS (33)
  - Gait disturbance [Unknown]
  - Drug ineffective [Unknown]
  - General physical health deterioration [Unknown]
  - Nausea [Unknown]
  - Pyrexia [Unknown]
  - Off label use [Unknown]
  - Feeling cold [Unknown]
  - Hypersomnia [Unknown]
  - Thinking abnormal [Unknown]
  - Arthralgia [Unknown]
  - Body temperature abnormal [Unknown]
  - Feeling of body temperature change [Unknown]
  - Eating disorder [Unknown]
  - Dizziness [Unknown]
  - Heart rate increased [Unknown]
  - Muscle spasms [Unknown]
  - Musculoskeletal stiffness [Unknown]
  - Depression [Unknown]
  - Discomfort [Not Recovered/Not Resolved]
  - Chills [Unknown]
  - Influenza like illness [Not Recovered/Not Resolved]
  - Weight decreased [Unknown]
  - Migraine [Unknown]
  - Pain in extremity [Unknown]
  - Bone disorder [Unknown]
  - Headache [Unknown]
  - Feeling abnormal [Unknown]
  - Movement disorder [Unknown]
  - Pain [Not Recovered/Not Resolved]
  - Withdrawal syndrome [Unknown]
  - Asthenia [Unknown]
  - Anxiety [Unknown]
  - Joint stiffness [Unknown]

NARRATIVE: CASE EVENT DATE: 20200330
